FAERS Safety Report 8589972-1 (Version None)
Quarter: 2012Q3

REPORT INFORMATION
  Report Type: 
  Country: None (occurrence: None)
  Receive Date: 20120813
  Receipt Date: 19920605
  Transmission Date: 20120928
  Serious: Yes (Other)
  Sender: FDA-Public Use
  Company Number: US-ROCHE-1099334

PATIENT
  Age: 39 Year
  Sex: Female

DRUGS (4)
  1. ACTIVASE [Suspect]
     Indication: ACUTE MYOCARDIAL INFARCTION
     Dosage: BOLUS
     Route: 042
  2. ACTIVASE [Suspect]
     Route: 042
  3. ACTIVASE [Suspect]
     Dosage: FOR 60 MINUTES
     Route: 042
  4. ACTIVASE [Suspect]
     Dosage: FOR 30 MINUTES
     Route: 042

REACTIONS (3)
  - NAUSEA [None]
  - DYSPNOEA [None]
  - CHEST PAIN [None]
